FAERS Safety Report 14684208 (Version 1)
Quarter: 2018Q1

REPORT INFORMATION
  Report Type: Spontaneous
  Country: US (occurrence: US)
  Receive Date: 20180327
  Receipt Date: 20180327
  Transmission Date: 20180509
  Serious: No
  Sender: FDA-Public Use
  Company Number: US-ELI_LILLY_AND_COMPANY-US201803001022

PATIENT
  Sex: Female
  Weight: 108.84 kg

DRUGS (4)
  1. LANTUS [Suspect]
     Active Substance: INSULIN GLARGINE
     Indication: PRODUCT USED FOR UNKNOWN INDICATION
     Dosage: UNK, UNKNOWN
     Route: 065
  2. HUMALOG [Suspect]
     Active Substance: INSULIN LISPRO
     Indication: PRODUCT USED FOR UNKNOWN INDICATION
     Dosage: UNK, UNKNOWN
     Route: 065
  3. HUMALOG [Suspect]
     Active Substance: INSULIN LISPRO
     Dosage: UNK, UNKNOWN
     Route: 065
  4. HUMALOG [Suspect]
     Active Substance: INSULIN LISPRO
     Dosage: UNK, UNKNOWN
     Route: 065

REACTIONS (13)
  - Feeling abnormal [Unknown]
  - Headache [Unknown]
  - Product storage error [Unknown]
  - Hot flush [Not Recovered/Not Resolved]
  - Malaise [Unknown]
  - Injection site pain [Unknown]
  - Drug dose omission [Unknown]
  - Injection site bruising [Not Recovered/Not Resolved]
  - Burning sensation [Not Recovered/Not Resolved]
  - Tremor [Unknown]
  - Blood glucose increased [Not Recovered/Not Resolved]
  - Abdominal discomfort [Unknown]
  - Weight decreased [Recovering/Resolving]

NARRATIVE: CASE EVENT DATE: 2014
